FAERS Safety Report 9886851 (Version 1)
Quarter: 2014Q1

REPORT INFORMATION
  Report Type: Spontaneous
  Country: US (occurrence: US)
  Receive Date: 20140210
  Receipt Date: 20140210
  Transmission Date: 20141002
  Serious: Yes (Death, Other)
  Sender: FDA-Public Use
  Company Number: US-GILEAD-2014-0094054

PATIENT
  Age: 56 Year
  Sex: Female

DRUGS (10)
  1. LETAIRIS [Suspect]
     Indication: PULMONARY ARTERIAL HYPERTENSION
     Dosage: 5 MG, QD
     Route: 048
     Dates: start: 20130824, end: 201401
  2. DIGOXIN [Concomitant]
  3. LEVOTHYROXINE [Concomitant]
  4. LASIX                              /00032601/ [Concomitant]
  5. LISINOPRIL [Concomitant]
  6. SIMVASTATIN [Concomitant]
  7. WARFARIN [Concomitant]
  8. PROAIR                             /00139502/ [Concomitant]
  9. CARVEDILOL [Concomitant]
  10. LORATADINE [Concomitant]

REACTIONS (1)
  - Death [Fatal]
